FAERS Safety Report 4936301-8 (Version None)
Quarter: 2006Q1

REPORT INFORMATION
  Report Type: 
  Country: None (occurrence: None)
  Receive Date: 20060127
  Receipt Date: 20051128
  Transmission Date: 20060701
  Serious: Yes (Other)
  Sender: FDA-Public Use
  Company Number: 2005162755

PATIENT
  Age: 77 Year
  Sex: Female
  Weight: 61.6892 kg

DRUGS (6)
  1. LYRICA [Suspect]
     Indication: PAIN IN EXTREMITY
     Dosage: 150 MG(50 MG,3 IN 1 D), ORAL
     Route: 048
     Dates: start: 20051117
  2. ARICEPT [Concomitant]
  3. FLECAINIDE ACETATE [Concomitant]
  4. VITAMINS (VITAMINS) [Concomitant]
  5. IRON (IRON) [Concomitant]
  6. DYAZIDE [Concomitant]

REACTIONS (3)
  - ARRHYTHMIA [None]
  - HEART RATE INCREASED [None]
  - PYREXIA [None]
